FAERS Safety Report 6032941-6 (Version None)
Quarter: 2009Q1

REPORT INFORMATION
  Report Type: 
  Country: None (occurrence: None)
  Receive Date: 20090105
  Receipt Date: 20080307
  Transmission Date: 20090719
  Serious: Yes (Other)
  Sender: FDA-Public Use
  Company Number: US-000404

PATIENT
  Sex: Male

DRUGS (2)
  1. PROHANCE [Suspect]
     Indication: ATAXIA
     Dosage: 15ML QD INTRAVENOUS
     Route: 042
     Dates: start: 20080307, end: 20080307
  2. PROHANCE [Suspect]
     Indication: NUCLEAR MAGNETIC RESONANCE IMAGING BRAIN
     Dosage: 15ML QD INTRAVENOUS
     Route: 042
     Dates: start: 20080307, end: 20080307

REACTIONS (4)
  - APHONIA [None]
  - COUGH [None]
  - NASAL CONGESTION [None]
  - THROAT IRRITATION [None]
